FAERS Safety Report 15507293 (Version 3)
Quarter: 2018Q4

REPORT INFORMATION
  Report Type: Spontaneous
  Country: RO (occurrence: RO)
  Receive Date: 20181016
  Receipt Date: 20181130
  Transmission Date: 20190205
  Serious: Yes (Hospitalization, Other)
  Sender: FDA-Public Use
  Company Number: RO-PFIZER INC-2018398485

PATIENT
  Age: 53 Year
  Sex: Male
  Weight: 87 kg

DRUGS (5)
  1. TERTENSIF [Concomitant]
     Active Substance: INDAPAMIDE
     Indication: ESSENTIAL HYPERTENSION
     Dosage: UNK
  2. ATACAND [Concomitant]
     Active Substance: CANDESARTAN CILEXETIL
     Indication: ESSENTIAL HYPERTENSION
     Dosage: UNK
  3. BETALOC [METOPROLOL SUCCINATE] [Concomitant]
     Indication: ESSENTIAL HYPERTENSION
     Dosage: UNK
  4. SUTENT [Suspect]
     Active Substance: SUNITINIB MALATE
     Indication: METASTATIC RENAL CELL CARCINOMA
     Dosage: 50 MG, CYCLIC, 4 WEEKS/ 2 WEEKS
     Dates: start: 201410, end: 201811
  5. EUTHYROX [Concomitant]
     Active Substance: LEVOTHYROXINE SODIUM
     Indication: THYROIDITIS
     Dosage: UNK

REACTIONS (2)
  - Neoplasm progression [Recovering/Resolving]
  - Hepatitis B [Not Recovered/Not Resolved]

NARRATIVE: CASE EVENT DATE: 201810
